FAERS Safety Report 18373556 (Version 1)
Quarter: 2020Q4

REPORT INFORMATION
  Report Type: Spontaneous
  Country: US (occurrence: US)
  Receive Date: 20201012
  Receipt Date: 20201012
  Transmission Date: 20210114
  Serious: Yes (Death, Hospitalization)
  Sender: FDA-Public Use
  Company Number: US-CELGENEUS-USA-20201001770

PATIENT
  Age: 63 Year
  Sex: Female

DRUGS (1)
  1. POMALYST [Suspect]
     Active Substance: POMALIDOMIDE
     Indication: PLASMA CELL MYELOMA
     Dosage: 4 MILLIGRAM
     Route: 048
     Dates: start: 20200605

REACTIONS (6)
  - Sepsis [Fatal]
  - Haemothorax [Fatal]
  - Renal failure [Fatal]
  - Altered state of consciousness [Fatal]
  - Septic shock [Fatal]
  - Anaemia [Fatal]

NARRATIVE: CASE EVENT DATE: 2020
